FAERS Safety Report 23182540 (Version 1)
Quarter: 2023Q4

REPORT INFORMATION
  Report Type: Spontaneous
  Country: US (occurrence: US)
  Receive Date: 20231114
  Receipt Date: 20231114
  Transmission Date: 20240109
  Serious: No
  Sender: FDA-Public Use
  Company Number: US-OptiNose US, Inc-2023OPT000032

PATIENT
  Age: 75 Year
  Sex: Female

DRUGS (2)
  1. XHANCE [Suspect]
     Active Substance: FLUTICASONE PROPIONATE
     Indication: Nasal polyps
     Dosage: 1 - 2 SPRAYS INTO EACH NOSTRIL TWICE DAILY
     Route: 045
     Dates: start: 20230105
  2. XHANCE [Suspect]
     Active Substance: FLUTICASONE PROPIONATE
     Route: 045

REACTIONS (4)
  - Dysgeusia [Unknown]
  - Anosmia [Unknown]
  - Nasal congestion [Unknown]
  - Drug ineffective [Unknown]

NARRATIVE: CASE EVENT DATE: 20230104
